FAERS Safety Report 21464489 (Version 1)
Quarter: 2022Q4

REPORT INFORMATION
  Report Type: Report from Study
  Country: US (occurrence: US)
  Receive Date: 20221017
  Receipt Date: 20221017
  Transmission Date: 20230112
  Serious: No
  Sender: FDA-Public Use
  Company Number: US-ABBVIE-4132705

PATIENT
  Age: 39 Year
  Sex: Female

DRUGS (2)
  1. HUMIRA [Suspect]
     Active Substance: ADALIMUMAB
     Indication: Hidradenitis
     Dosage: DAY 1, FIRST ADMIN DATE- JUN 2022, END DATE 2022
     Route: 058
  2. HUMIRA [Suspect]
     Active Substance: ADALIMUMAB
     Dosage: FIRST ADMIN DATE- 2022, END DATE-2022
     Route: 058

REACTIONS (1)
  - Drug ineffective [Unknown]

NARRATIVE: CASE EVENT DATE: 20220801
